FAERS Safety Report 11022076 (Version 1)
Quarter: 2015Q2

REPORT INFORMATION
  Report Type: Report from Study
  Country: BR (occurrence: BR)
  Receive Date: 20150413
  Receipt Date: 20150413
  Transmission Date: 20150821
  Serious: Yes (Death)
  Sender: FDA-Public Use
  Company Number: PHHY2015BR042922

PATIENT
  Sex: Male

DRUGS (1)
  1. EXJADE [Suspect]
     Active Substance: DEFERASIROX
     Indication: IRON OVERLOAD
     Route: 065

REACTIONS (5)
  - Haemochromatosis [Fatal]
  - Liver disorder [Unknown]
  - Vomiting [Unknown]
  - Drug ineffective [Unknown]
  - Malaise [Unknown]
